FAERS Safety Report 5369302-9 (Version None)
Quarter: 2007Q2

REPORT INFORMATION
  Report Type: 
  Country: None (occurrence: None)
  Receive Date: 20070625
  Receipt Date: 20070307
  Transmission Date: 20071010
  Serious: No
  Sender: FDA-Public Use
  Company Number: US-ASTRAZENECA-2007UW04283

PATIENT
  Age: 29 Year
  Sex: Male
  Weight: 60.8 kg

DRUGS (3)
  1. CRESTOR [Suspect]
     Indication: DYSLIPIDAEMIA
     Route: 048
     Dates: start: 20070201
  2. COQ10 [Concomitant]
  3. OMEGA 3 [Concomitant]

REACTIONS (1)
  - BLOOD TESTOSTERONE DECREASED [None]
